FAERS Safety Report 5492805-3 (Version None)
Quarter: 2007Q4

REPORT INFORMATION
  Report Type: 
  Country: None (occurrence: None)
  Receive Date: 20071023
  Receipt Date: 20071017
  Transmission Date: 20080405
  Serious: Yes (Death)
  Sender: FDA-Public Use
  Company Number: GB-ELI_LILLY_AND_COMPANY-GB200710004385

PATIENT
  Age: 75 Year
  Sex: Female

DRUGS (2)
  1. OLANZAPINE [Suspect]
     Indication: BIPOLAR DISORDER
     Dosage: UNK, 3/D
  2. DIAZEPAM [Concomitant]
     Dosage: 15 MG, UNK

REACTIONS (3)
  - DROWNING [None]
  - OVERDOSE [None]
  - SOMNOLENCE [None]
